FAERS Safety Report 8400552-0 (Version None)
Quarter: 2012Q2

REPORT INFORMATION
  Report Type: 
  Country: None (occurrence: None)
  Receive Date: 20120531
  Receipt Date: 20120525
  Transmission Date: 20120825
  Serious: Yes (Hospitalization, Other)
  Sender: FDA-Public Use
  Company Number: US-PFIZER INC-2012083571

PATIENT
  Sex: Female
  Weight: 72.109 kg

DRUGS (34)
  1. LYRICA [Suspect]
     Indication: DIABETIC NEUROPATHY
     Dosage: 75 MG, 2X/DAY
     Route: 048
     Dates: start: 20010101
  2. GLIMEPIRIDE [Concomitant]
     Dosage: 4 MG, 2X/DAY (2MG/ AM 2 QDAY 4 MG)
     Dates: start: 20060815
  3. GLUCOPHAGE [Concomitant]
     Dosage: 500 MG, 2X/DAY
     Dates: start: 20081023
  4. HYDROCODONE BITARTRATE + ACETAMINOPHEN [Concomitant]
     Dosage: 5/500TID Q4 PRN
  5. METFORMIN [Concomitant]
     Indication: DIABETES MELLITUS
     Dosage: UNK
  6. TOPROL-XL [Concomitant]
     Dosage: 100 MG, 1, 1X/DAY
  7. WELLBUTRIN SR [Concomitant]
     Dosage: UNK
  8. LYRICA [Suspect]
     Dosage: 75 MG, 2X/DAY
     Route: 048
     Dates: start: 20080418
  9. LOPID [Concomitant]
     Indication: BLOOD CHOLESTEROL ABNORMAL
     Dosage: 600 MG, 2X/DAY
     Route: 048
     Dates: start: 20060815
  10. ALBUTEROL [Concomitant]
     Dosage: UNK, 2 PUFFS QID PRN
     Dates: start: 20080815
  11. CALTRATE + D [Concomitant]
     Dosage: D QD
  12. POTASSIUM [Concomitant]
     Dosage: 550 MG, QD
  13. GEMFIBROZIL [Concomitant]
     Dosage: 600 MG, 2X/DAY (1200MG QD)
  14. SIMVASTATIN [Concomitant]
     Dosage: 20 MG, 1 QHS
     Dates: start: 20080421
  15. REQUIP [Concomitant]
     Dosage: 0.5 MG, QHS
  16. HYDROCODONE BITARTRATE + ACETAMINOPHEN [Concomitant]
     Dosage: 10/500 MG PO Q4 PRN
  17. LORAZEPAM [Concomitant]
     Dosage: 1 MG, QHS
  18. MAGNESIUM [Concomitant]
     Dosage: UNK, QD
     Dates: start: 20100201
  19. MULTI-VITAMINS [Concomitant]
     Dosage: 1 QD
     Dates: start: 20060815
  20. CALTRATE + D [Concomitant]
     Dosage: UNK, BID
  21. PREMARIN [Concomitant]
     Dosage: 0.625 MG, 1X/DAY
     Dates: start: 20060815
  22. ZYRTEC [Concomitant]
     Dosage: 10 MG, D 2 PRN
     Dates: start: 20090617
  23. MUCINEX [Concomitant]
     Dosage: UNK, D PRN
     Dates: start: 20090617
  24. LYRICA [Suspect]
     Dosage: 75 MG, 4X/DAY
  25. HYDROCODONE [Concomitant]
     Indication: PAIN
     Dosage: UNK
     Dates: start: 20080725
  26. PAROXETINE [Concomitant]
     Dosage: 20 MG, 1 1X/DAY
     Dates: start: 20060815
  27. LASIX [Concomitant]
     Dosage: 20 MG, 1, 2X/DAY
     Dates: start: 20080418
  28. NISOREX [Concomitant]
     Dosage: 2 EACH NOSTRIL Q DAY PRN
  29. LORAZEPAM [Concomitant]
     Dosage: 1 MG, 2X/DAY
     Dates: start: 20060815
  30. PAROXETINE HYDROCHLORIDE [Concomitant]
     Dosage: 20 MG, 1, 1X/DAY
  31. FLONASE [Concomitant]
     Dosage: UNK
     Dates: start: 20060815
  32. LORTAB [Concomitant]
     Dosage: QID
  33. CITRACAL [Concomitant]
     Dosage: PLUS BID
     Dates: start: 20060815
  34. HYDROCHLOROTHIAZIDE [Concomitant]
     Dosage: 25 MG, 1X/DAY DC

REACTIONS (9)
  - MALAISE [None]
  - PAIN [None]
  - CRYING [None]
  - MUSCULOSKELETAL DISORDER [None]
  - PRURITUS [None]
  - ARTHRITIS [None]
  - FEELING ABNORMAL [None]
  - RESTLESSNESS [None]
  - DYSPNOEA [None]
